FAERS Safety Report 7342176-2 (Version None)
Quarter: 2011Q1

REPORT INFORMATION
  Report Type: 
  Country: None (occurrence: None)
  Receive Date: 20110309
  Receipt Date: 20110228
  Transmission Date: 20110831
  Serious: Yes (Hospitalization)
  Sender: FDA-Public Use
  Company Number: US-ASTRAZENECA-2011SE11493

PATIENT
  Age: 32 Year
  Sex: Female

DRUGS (1)
  1. SEROQUEL XR [Suspect]
     Route: 048

REACTIONS (3)
  - FIBROMYALGIA [None]
  - IMPLANTABLE DEFIBRILLATOR INSERTION [None]
  - SICKLE CELL ANAEMIA [None]
